FAERS Safety Report 6007759-0 (Version None)
Quarter: 2008Q4

REPORT INFORMATION
  Report Type: 
  Country: None (occurrence: None)
  Receive Date: 20081217
  Receipt Date: 20080530
  Transmission Date: 20090506
  Serious: No
  Sender: FDA-Public Use
  Company Number: US-ASTRAZENECA-2008UW10982

PATIENT
  Age: 57 Year
  Sex: Female
  Weight: 53.5 kg

DRUGS (2)
  1. CRESTOR [Suspect]
     Indication: BLOOD CHOLESTEROL INCREASED
     Route: 048
     Dates: start: 20080522
  2. SYNTHROID [Concomitant]

REACTIONS (4)
  - BODY TEMPERATURE INCREASED [None]
  - DIZZINESS [None]
  - HYPERHIDROSIS [None]
  - PRESYNCOPE [None]
